FAERS Safety Report 12723101 (Version 2)
Quarter: 2016Q3

REPORT INFORMATION
  Report Type: Spontaneous
  Country: US (occurrence: US)
  Receive Date: 20160908
  Receipt Date: 20160920
  Transmission Date: 20161109
  Serious: Yes (Hospitalization, Other)
  Sender: FDA-Public Use
  Company Number: US-UCBSA-2016034275

PATIENT
  Sex: Male
  Weight: 87.2 kg

DRUGS (1)
  1. KEPPRA [Suspect]
     Active Substance: LEVETIRACETAM
     Indication: PRODUCT USED FOR UNKNOWN INDICATION
     Dosage: 2000 MG, 2X/DAY (BID)
     Route: 048
     Dates: end: 20160901

REACTIONS (4)
  - Off label use [Unknown]
  - Overdose [Unknown]
  - Generalised tonic-clonic seizure [Unknown]
  - Acute kidney injury [Recovering/Resolving]
